FAERS Safety Report 20645948 (Version 4)
Quarter: 2022Q3

REPORT INFORMATION
  Report Type: Spontaneous
  Country: US (occurrence: US)
  Receive Date: 20220329
  Receipt Date: 20220803
  Transmission Date: 20221027
  Serious: Yes (Other)
  Sender: FDA-Public Use
  Company Number: US-JNJFOC-20220347365

PATIENT
  Age: 6 Decade
  Sex: Female

DRUGS (2)
  1. ELMIRON [Suspect]
     Active Substance: PENTOSAN POLYSULFATE SODIUM
     Indication: Cystitis interstitial
     Route: 048
     Dates: start: 2000
  2. ELMIRON [Suspect]
     Active Substance: PENTOSAN POLYSULFATE SODIUM
     Dosage: 400 TO 600 MG (200 MG TWICE PER DAY ELEVATED TO 300 MG TWICE A DAY WHEN NEEDED)
     Route: 048
     Dates: start: 2002, end: 2014

REACTIONS (6)
  - Maculopathy [Unknown]
  - Dry age-related macular degeneration [Not Recovered/Not Resolved]
  - Blindness [Unknown]
  - Generalised anxiety disorder [Not Recovered/Not Resolved]
  - Off label use [Unknown]
  - Product use issue [Unknown]

NARRATIVE: CASE EVENT DATE: 20020101
